FAERS Safety Report 10873806 (Version 1)
Quarter: 2015Q1

REPORT INFORMATION
  Report Type: Spontaneous
  Country: NO (occurrence: None)
  Receive Date: 20150224
  Receipt Date: 20150224
  Transmission Date: 20150721
  Serious: Yes (Hospitalization)
  Sender: FDA-Public Use
  Company Number: NO-ZYDUS-006806

PATIENT
  Age: 58 Year
  Sex: Male

DRUGS (2)
  1. HALOPERIDOL (HALOPERIDOL) (HALOPERIDOL) [Suspect]
     Active Substance: HALOPERIDOL
  2. OLANZAPINE (OLANZAPINE) [Suspect]
     Active Substance: OLANZAPINE

REACTIONS (2)
  - Dysphoria [None]
  - Agitation [None]
